FAERS Safety Report 5934319-X (Version None)
Quarter: 2008Q4

REPORT INFORMATION
  Report Type: 
  Country: None (occurrence: None)
  Receive Date: 20081029
  Receipt Date: 20081020
  Transmission Date: 20090506
  Serious: Yes (Other)
  Sender: FDA-Public Use
  Company Number: PHHY2008BR25219

PATIENT
  Sex: Female
  Weight: 60 kg

DRUGS (1)
  1. GALVUS MET COMBIPACK [Suspect]
     Indication: BLOOD GLUCOSE INCREASED
     Dosage: 850/50 MG (2 TABLETS OF VILDAGLIPTIN PER DAY (AFTER LUNCH AND DINNER))
     Route: 048
     Dates: start: 20081010, end: 20081020

REACTIONS (2)
  - BLOOD GLUCOSE INCREASED [None]
  - MEDICATION ERROR [None]
